FAERS Safety Report 5814454-7 (Version None)
Quarter: 2008Q3

REPORT INFORMATION
  Report Type: 
  Country: None (occurrence: None)
  Receive Date: 20080718
  Receipt Date: 20080707
  Transmission Date: 20090109
  Serious: Yes (Hospitalization)
  Sender: FDA-Public Use
  Company Number: US-JNJFOC-20080702508

PATIENT
  Age: 38 Year
  Sex: Female
  Weight: 93.98 kg

DRUGS (3)
  1. TOPAMAX [Suspect]
     Indication: DRUG USE FOR UNKNOWN INDICATION
  2. KEPPRA [Suspect]
     Indication: DRUG USE FOR UNKNOWN INDICATION
  3. TEMODAR [Suspect]
     Indication: GLIOBLASTOMA MULTIFORME
     Route: 048

REACTIONS (4)
  - ACIDOSIS [None]
  - DRUG LEVEL BELOW THERAPEUTIC [None]
  - PNEUMONIA ASPIRATION [None]
  - STATUS EPILEPTICUS [None]
